FAERS Safety Report 17615111 (Version 1)
Quarter: 2020Q2

REPORT INFORMATION
  Report Type: Spontaneous
  Country: US (occurrence: US)
  Receive Date: 20200402
  Receipt Date: 20200402
  Transmission Date: 20200713
  Serious: Yes (Other)
  Sender: FDA-Public Use
  Company Number: US-PFIZER INC-2020133963

PATIENT
  Age: 70 Year
  Sex: Male
  Weight: 83.91 kg

DRUGS (12)
  1. LYRICA [Suspect]
     Active Substance: PREGABALIN
     Indication: PAIN
     Dosage: 75 MG, 3X/DAY
     Dates: start: 2017
  2. METFORMIN [Concomitant]
     Active Substance: METFORMIN HYDROCHLORIDE
     Indication: DIABETES MELLITUS
     Dosage: 500 MG, 2X/DAY
     Route: 048
  3. ALLOPURINOL. [Concomitant]
     Active Substance: ALLOPURINOL
     Indication: NEPHROLITHIASIS
  4. ALLOPURINOL. [Concomitant]
     Active Substance: ALLOPURINOL
     Indication: GOUT
  5. ALLOPURINOL. [Concomitant]
     Active Substance: ALLOPURINOL
     Indication: BLOOD URIC ACID INCREASED
     Dosage: 300 MG, 1X/DAY
  6. TAMSULOSIN [Concomitant]
     Active Substance: TAMSULOSIN
     Indication: MICTURITION DISORDER
     Dosage: 0.4 MG, 1X/DAY
  7. LOSARTAN POTASSIUM. [Concomitant]
     Active Substance: LOSARTAN POTASSIUM
     Indication: HYPERTENSION
     Dosage: 25 MG, 1X/DAY
  8. PROBENECID/COLCHICINE [Concomitant]
     Active Substance: COLCHICINE\PROBENECID
     Indication: GOUT
     Dosage: 1 DF, DAILY (500-PROBENECID/0.15-COLCHICINE TABLET, ONE TABLET EVERY DAY)
  9. LATANOPROST. [Concomitant]
     Active Substance: LATANOPROST
     Indication: GLAUCOMA
     Dosage: 2 GTT, UNK (0.005% ONE DROP EACH EYE)
  10. ATORVASTATIN CALCIUM. [Concomitant]
     Active Substance: ATORVASTATIN CALCIUM
     Indication: BLOOD CHOLESTEROL INCREASED
     Dosage: 40 MG, 1X/DAY
  11. GLIPERIDE [Concomitant]
     Active Substance: GLIMEPIRIDE
     Indication: DIABETES MELLITUS
     Dosage: 2 MG, 1X/DAY
  12. BROMADINE-DM [Concomitant]
     Indication: GLAUCOMA
     Dosage: 2 GTT, 2X/DAY (0.2% DROP IN BOTH EYES TWO TIMES A DAY)

REACTIONS (4)
  - Retinal detachment [Unknown]
  - Retinoschisis [Unknown]
  - Visual impairment [Unknown]
  - Urinary tract infection [Unknown]
